APPROVED DRUG PRODUCT: PIROXICAM
Active Ingredient: PIROXICAM
Strength: 10MG
Dosage Form/Route: CAPSULE;ORAL
Application: A073536 | Product #002
Applicant: SUN PHARMACEUTICAL INDUSTRIES INC
Approved: Jan 23, 2008 | RLD: No | RS: No | Type: DISCN